FAERS Safety Report 9753641 (Version 1)
Quarter: 2013Q4

REPORT INFORMATION
  Report Type: Spontaneous
  Country: US (occurrence: US)
  Receive Date: 20131213
  Receipt Date: 20131213
  Transmission Date: 20140711
  Serious: Yes (Hospitalization)
  Sender: FDA-Public Use
  Company Number: PHEH2013US025540

PATIENT
  Age: 70 Year
  Sex: Female

DRUGS (7)
  1. DIOVAN [Suspect]
     Indication: HYPERTENSION
     Dosage: 80 MG, UNK
  2. DIOVAN [Suspect]
     Dosage: 160 MG, DAILY
     Route: 048
  3. LIPITOR [Concomitant]
     Indication: BLOOD CHOLESTEROL ABNORMAL
     Dosage: UNK UKN, UNK
  4. CHLORTHALIDONE [Concomitant]
     Indication: HYPERTENSION
     Dosage: UNK UKN, UNK
  5. MONTELUKAST SODIUM [Concomitant]
     Indication: ASTHMA
     Dosage: UNK UKN, UNK
  6. DEXILANT [Concomitant]
     Dosage: 60 MG, UNK
  7. ALVESCO [Concomitant]
     Indication: ASTHMA
     Dosage: UNK UKN, UNK

REACTIONS (3)
  - Carotid body tumour [Unknown]
  - VIIth nerve paralysis [Unknown]
  - Blood pressure abnormal [Unknown]
